FAERS Safety Report 9321032 (Version 1)
Quarter: 2013Q2

REPORT INFORMATION
  Report Type: Spontaneous
  Country: GB (occurrence: None)
  Receive Date: 20130528
  Receipt Date: 20130528
  Transmission Date: 20140414
  Serious: Yes (Other)
  Sender: FDA-Public Use
  Company Number: 1718629

PATIENT
  Age: 10 Year
  Sex: Male

DRUGS (7)
  1. CYTARABINE [Suspect]
     Indication: ACUTE LYMPHOCYTIC LEUKAEMIA
     Dosage: (NOT OTHERWISE SPECIFIED)
     Route: 042
  2. METHOTREXATE [Suspect]
     Indication: ACUTE LYMPHOCYTIC LEUKAEMIA
     Route: 037
  3. CYCLOPHOSPHAMIDE [Suspect]
     Indication: ACUTE LYMPHOCYTIC LEUKAEMIA
     Dosage: (NOT OTHERWISE SPECIFIED)
     Route: 042
  4. (VINCRISTINE) [Concomitant]
  5. (DEXAMETHASONE) [Concomitant]
  6. (ASPARAGINASE) [Concomitant]
  7. (DAUNORUBICIN) [Concomitant]

REACTIONS (7)
  - Aphasia [None]
  - Conversion disorder [None]
  - Crying [None]
  - Inappropriate affect [None]
  - Paraesthesia oral [None]
  - Jaw disorder [None]
  - Paraesthesia [None]
